FAERS Safety Report 10578700 (Version 1)
Quarter: 2014Q4

REPORT INFORMATION
  Report Type: Spontaneous
  Country: US (occurrence: US)
  Receive Date: 20141112
  Receipt Date: 20141112
  Transmission Date: 20150529
  Serious: No
  Sender: FDA-Public Use
  Company Number: US-ENDO PHARMACEUTICALS INC.-ALPR20140024

PATIENT
  Age: 75 Year
  Sex: Female

DRUGS (1)
  1. ALPRAZOLAM TABLETS 2 MG [Suspect]
     Active Substance: ALPRAZOLAM
     Indication: ANXIETY
     Dates: start: 201404

REACTIONS (2)
  - Dyspepsia [Not Recovered/Not Resolved]
  - Panic attack [Not Recovered/Not Resolved]

NARRATIVE: CASE EVENT DATE: 201404
